FAERS Safety Report 6576772-7 (Version None)
Quarter: 2010Q1

REPORT INFORMATION
  Report Type: 
  Country: None (occurrence: None)
  Receive Date: 20100210
  Receipt Date: 20100202
  Transmission Date: 20100710
  Serious: Yes (Other)
  Sender: FDA-Public Use
  Company Number: US-SANOFI-AVENTIS-2010SA002051

PATIENT
  Age: 45 Year
  Sex: Female

DRUGS (2)
  1. OPTICLICK [Suspect]
     Indication: TYPE 2 DIABETES MELLITUS
     Dates: start: 20050101
  2. LANTUS [Suspect]
     Indication: TYPE 2 DIABETES MELLITUS
     Dosage: DOSE:70 UNIT(S)
     Route: 058
     Dates: start: 20010101

REACTIONS (9)
  - BLINDNESS [None]
  - BLOOD GLUCOSE DECREASED [None]
  - FALL [None]
  - FIBROMYALGIA [None]
  - HIP FRACTURE [None]
  - INJURY ASSOCIATED WITH DEVICE [None]
  - LOWER LIMB FRACTURE [None]
  - MALAISE [None]
  - TREMOR [None]
